FAERS Safety Report 11984321 (Version 2)
Quarter: 2016Q2

REPORT INFORMATION
  Report Type: Spontaneous
  Country: US (occurrence: US)
  Receive Date: 20160201
  Receipt Date: 20160602
  Transmission Date: 20160815
  Serious: No
  Sender: FDA-Public Use
  Company Number: US-KADMON PHARMACEUTICALS, LLC-KAD201502-000335

PATIENT
  Sex: Male

DRUGS (3)
  1. RIBAVIRIN. [Suspect]
     Active Substance: RIBAVIRIN
     Indication: HEPATITIS C
  2. INTERFERON [Suspect]
     Active Substance: INTERFERON
     Indication: HEPATITIS C
  3. HARVONI [Concomitant]
     Active Substance: LEDIPASVIR\SOFOSBUVIR

REACTIONS (6)
  - Pallor [Unknown]
  - Anaemia [Recovered/Resolved]
  - Nausea [Unknown]
  - Asthenia [Unknown]
  - Drug ineffective [Unknown]
  - Hiccups [Unknown]
